FAERS Safety Report 13015909 (Version 2)
Quarter: 2017Q1

REPORT INFORMATION
  Report Type: Spontaneous
  Country: US (occurrence: US)
  Receive Date: 20161212
  Receipt Date: 20170303
  Transmission Date: 20170428
  Serious: Yes (Death, Hospitalization)
  Sender: FDA-Public Use
  Company Number: US-JNJFOC-20161027349

PATIENT
  Age: 83 Year
  Sex: Female

DRUGS (1)
  1. XARELTO [Suspect]
     Active Substance: RIVAROXABAN
     Indication: ANTICOAGULANT THERAPY
     Route: 048
     Dates: start: 20141201, end: 20141225

REACTIONS (4)
  - Renal haemorrhage [Fatal]
  - Vaginal haemorrhage [Fatal]
  - Internal haemorrhage [Fatal]
  - Uterine haemorrhage [Fatal]

NARRATIVE: CASE EVENT DATE: 201412
